FAERS Safety Report 21108700 (Version 2)
Quarter: 2022Q3

REPORT INFORMATION
  Report Type: Spontaneous
  Country: PT (occurrence: PT)
  Receive Date: 20220721
  Receipt Date: 20220902
  Transmission Date: 20221026
  Serious: Yes (Disabling, Other)
  Sender: FDA-Public Use
  Company Number: None

PATIENT
  Age: 65 Year
  Sex: Female

DRUGS (3)
  1. CINACALCET [Suspect]
     Active Substance: CINACALCET
     Indication: Product used for unknown indication
     Dosage: 30 MILLIGRAM DAILY; THE DOCTOR PRESCRIBED IT 3X A DAY, BUT THE PATIENT ONLY TOOK IT 1X A DAY., STREN
     Dates: start: 2019, end: 202201
  2. LEVOTHYROXINE SODIUM [Concomitant]
     Active Substance: LEVOTHYROXINE SODIUM
     Indication: Product used for unknown indication
     Dosage: 75 MICROGRAM DAILY; 1X DAY EVERY DAY
  3. ASPIRIN [Concomitant]
     Active Substance: ASPIRIN
     Indication: Myocardial ischaemia
     Dosage: 100 MILLIGRAM DAILY; 1 PER DAY, STRENGTH:  100MG

REACTIONS (4)
  - Blindness [Unknown]
  - Strabismus [Unknown]
  - Pain of skin [Unknown]
  - Dysphonia [Unknown]

NARRATIVE: CASE EVENT DATE: 20190101
